FAERS Safety Report 9031111 (Version 1)
Quarter: 2013Q1

REPORT INFORMATION
  Report Type: Spontaneous
  Country: US (occurrence: US)
  Receive Date: 20130123
  Receipt Date: 20130123
  Transmission Date: 20140127
  Serious: Yes (Hospitalization)
  Sender: FDA-Public Use
  Company Number: US-BAYER-2013-008888

PATIENT
  Age: 40 Year
  Sex: Female

DRUGS (4)
  1. YASMIN [Suspect]
  2. AZITHROMYCIN [Concomitant]
     Indication: BRONCHITIS
     Dosage: 250 MG, UNK
  3. ALBUTEROL [Concomitant]
  4. PREDNISONE [Concomitant]
     Dosage: 20 MG, UNK

REACTIONS (2)
  - Ischaemic stroke [None]
  - Cerebral infarction [None]
